FAERS Safety Report 10296521 (Version 1)
Quarter: 2014Q3

REPORT INFORMATION
  Report Type: Spontaneous
  Country: FR (occurrence: FR)
  Receive Date: 20140710
  Receipt Date: 20140710
  Transmission Date: 20150326
  Serious: Yes (Other)
  Sender: FDA-Public Use
  Company Number: ALCN2014FR003796

PATIENT
  Sex: Male

DRUGS (1)
  1. VEXOL [Suspect]
     Active Substance: RIMEXOLONE
     Indication: ENDOPHTHALMITIS
     Dosage: UNK
     Route: 047

REACTIONS (3)
  - Eye injury [Unknown]
  - Corneal abscess [Unknown]
  - Eye infection [Unknown]
